FAERS Safety Report 5102710-X (Version None)
Quarter: 2006Q3

REPORT INFORMATION
  Report Type: 
  Country: None (occurrence: None)
  Receive Date: 20060907
  Receipt Date: 20060823
  Transmission Date: 20061208
  Serious: Yes (Hospitalization)
  Sender: FDA-Public Use
  Company Number: DEU-2006-0002432

PATIENT
  Age: 76 Year
  Sex: Female
  Weight: 95 kg

DRUGS (16)
  1. OXY/NALOXONE VS OXY/PLACEBO CR TAB (CODE NOT BROKEN) PROLONGED-RELEASE [Suspect]
     Indication: PAIN
     Dates: start: 20060517
  2. OXYCODONE HCL [Suspect]
     Indication: PAIN
     Dosage: PRN, ORAL
     Route: 048
     Dates: start: 20060605
  3. DOSULEPIN (DOSULEPIN) [Concomitant]
  4. SALBUTAMOL W/IPRATROPIUM (IPRATROPIUM, SALBUTAMOL) [Concomitant]
  5. FLUTICASONE PROPIONATE [Concomitant]
  6. SALMETEROL (SALMETEROL) [Concomitant]
  7. ASASANTIN (DIPYRIDAMOLE) [Concomitant]
  8. SIMVASTATIN [Concomitant]
  9. UNIPHYLLIN CONTINUS [Concomitant]
  10. SECURON (VERAPAMIL HYDROCHLORIDE) [Concomitant]
  11. PARACETAMOL [Concomitant]
  12. RANITIDINE [Concomitant]
  13. FYBOGEL (ISPAGHULA) [Concomitant]
  14. CO-AMOXICLAV (CLAVULANATE POTASSIUM, AMOXICILLIN TRIHYDRATE) [Concomitant]
  15. FUROSEMIDE [Concomitant]
  16. PERINDOPRIL ERBUMINE [Concomitant]

REACTIONS (1)
  - CELLULITIS [None]
